FAERS Safety Report 6804620-6 (Version None)
Quarter: 2010Q2

REPORT INFORMATION
  Report Type: 
  Country: None (occurrence: None)
  Receive Date: 20100628
  Receipt Date: 20070418
  Transmission Date: 20101027
  Serious: No
  Sender: FDA-Public Use
  Company Number: US-PFIZER INC-2007032293

PATIENT
  Sex: Female
  Weight: 68.181 kg

DRUGS (2)
  1. XALATAN [Suspect]
     Indication: GLAUCOMA
     Route: 047
     Dates: start: 20070322
  2. ACETYLSALICYLIC ACID [Concomitant]

REACTIONS (4)
  - EYE PRURITUS [None]
  - NERVOUSNESS [None]
  - PRURITUS [None]
  - PRURITUS GENERALISED [None]
